FAERS Safety Report 9486507 (Version 2)
Quarter: 2013Q3

REPORT INFORMATION
  Report Type: Spontaneous
  Country: US (occurrence: US)
  Receive Date: 20130829
  Receipt Date: 20130829
  Transmission Date: 20140515
  Serious: Yes (Other)
  Sender: FDA-Public Use
  Company Number: US-SANOFI-AVENTIS-2013SA000277

PATIENT
  Age: 50 Year
  Sex: Male

DRUGS (3)
  1. AUBAGIO [Suspect]
     Indication: MULTIPLE SCLEROSIS
     Route: 048
     Dates: start: 20121222, end: 201307
  2. AUBAGIO [Suspect]
     Indication: MULTIPLE SCLEROSIS
     Route: 048
     Dates: start: 20121230, end: 20121230
  3. ALL OTHER THERAPEUTIC PRODUCTS [Suspect]
     Route: 065

REACTIONS (6)
  - Multiple sclerosis relapse [Unknown]
  - Visual impairment [Recovered/Resolved]
  - Accidental overdose [Recovered/Resolved]
  - Diarrhoea [Recovered/Resolved]
  - Nausea [Not Recovered/Not Resolved]
  - Insomnia [Not Recovered/Not Resolved]
